FAERS Safety Report 23848157 (Version 1)
Quarter: 2024Q2

REPORT INFORMATION
  Report Type: Spontaneous
  Country: US (occurrence: None)
  Receive Date: 20240505
  Receipt Date: 20240505
  Transmission Date: 20240716
  Serious: Yes (Life-Threatening, Hospitalization, Disabling, Other)
  Sender: FDA-Public Use
  Company Number: None

PATIENT
  Age: 66 Year
  Sex: Male
  Weight: 68.04 kg

DRUGS (12)
  1. AMIODARONE [Suspect]
     Active Substance: AMIODARONE
  2. CUFFED TRACG VEBTILATOR [Concomitant]
  3. MEOFORMIN [Concomitant]
  4. VALIUM [Concomitant]
  5. OXYCODONE [Concomitant]
  6. PEPCID [Concomitant]
     Active Substance: FAMOTIDINE
  7. LIPITOR [Concomitant]
     Active Substance: ATORVASTATIN CALCIUM
  8. ALBUTEROL [Concomitant]
  9. DAILTY VITAMINS NO/IRON [Concomitant]
  10. WHEY PROTEIN [Concomitant]
  11. SENECOT [Concomitant]
  12. MIRALEX [Concomitant]

REACTIONS (8)
  - Pneumonia bacterial [None]
  - Atrial fibrillation [None]
  - Wound [None]
  - Fluid retention [None]
  - Dyspnoea [None]
  - Musculoskeletal stiffness [None]
  - Blood pressure abnormal [None]
  - Asphyxia [None]

NARRATIVE: CASE EVENT DATE: 20240427
